FAERS Safety Report 18494484 (Version 1)
Quarter: 2020Q4

REPORT INFORMATION
  Report Type: Spontaneous
  Country: US (occurrence: US)
  Receive Date: 20201112
  Receipt Date: 20201112
  Transmission Date: 20210114
  Serious: No
  Sender: FDA-Public Use
  Company Number: US-TARO-2019TAR00679

PATIENT
  Sex: Female

DRUGS (1)
  1. MUPIROCIN OINTMENT USP 2% [Suspect]
     Active Substance: MUPIROCIN
     Indication: STAPHYLOCOCCAL INFECTION
     Route: 045

REACTIONS (11)
  - Abdominal distension [Unknown]
  - Incorrect route of product administration [Unknown]
  - Rhinorrhoea [Unknown]
  - Off label use [Unknown]
  - Presyncope [Unknown]
  - Choking sensation [Unknown]
  - Abdominal discomfort [Unknown]
  - Fear [Unknown]
  - Dizziness [Unknown]
  - Pain [Unknown]
  - Heart rate increased [Unknown]
